FAERS Safety Report 6036398-0 (Version None)
Quarter: 2009Q1

REPORT INFORMATION
  Report Type: 
  Country: None (occurrence: None)
  Receive Date: 20090113
  Receipt Date: 20081229
  Transmission Date: 20090719
  Serious: Yes (Death)
  Sender: FDA-Public Use
  Company Number: FR-GENENTECH-275164

PATIENT

DRUGS (2)
  1. MABTHERA [Suspect]
     Dosage: 250 MG/M2, UNK
     Route: 065
  2. YTTRIUM-90 IBRITUMOMAB TIUXETAN [Suspect]
     Indication: NON-HODGKIN'S LYMPHOMA

REACTIONS (1)
  - ACUTE MYELOID LEUKAEMIA [None]
